FAERS Safety Report 6204474-5 (Version None)
Quarter: 2009Q2

REPORT INFORMATION
  Report Type: 
  Country: None (occurrence: None)
  Receive Date: 20090521
  Receipt Date: 20090505
  Transmission Date: 20091009
  Serious: Yes (Other)
  Sender: FDA-Public Use
  Company Number: 1-18346899

PATIENT
  Age: 76 Year
  Sex: Female

DRUGS (4)
  1. ULTIVA [Suspect]
     Indication: INDUCTION OF ANAESTHESIA
     Dosage: 0.05  TO 0.25MCG/KG/MIN
  2. AMITRIPTLINE HYDROCHLORIDE TAB [Suspect]
     Indication: DEPRESSION
     Dosage: 75 MG, DAILY, ORAL/6 YEARS PRIOR
     Route: 048
  3. PROPOFOL [Concomitant]
  4. VECURONIUM BROMIDE [Concomitant]

REACTIONS (5)
  - BLOOD PRESSURE DECREASED [None]
  - BLOOD PRESSURE INCREASED [None]
  - FALL [None]
  - HEART RATE DECREASED [None]
  - HUMERUS FRACTURE [None]
